FAERS Safety Report 20733344 (Version 3)
Quarter: 2023Q4

REPORT INFORMATION
  Report Type: Report from Study
  Country: DE (occurrence: DE)
  Receive Date: 20220421
  Receipt Date: 20231215
  Transmission Date: 20240110
  Serious: Yes (Hospitalization, Other)
  Sender: FDA-Public Use
  Company Number: DE-CELLTRION INC.-2022DE004780

PATIENT

DRUGS (9)
  1. INFLIXIMAB-DYYB [Suspect]
     Active Substance: INFLIXIMAB-DYYB
     Indication: Axial spondyloarthritis
     Dosage: 120 MILLIGRAM, EVERY 2 WEEKS
     Route: 058
     Dates: start: 20210915, end: 20210930
  2. INFLIXIMAB-DYYB [Suspect]
     Active Substance: INFLIXIMAB-DYYB
     Dosage: 120 MILLIGRAM
     Route: 058
     Dates: start: 20211015, end: 20220710
  3. INFLECTRA [Suspect]
     Active Substance: INFLIXIMAB-DYYB
     Indication: Product used for unknown indication
     Dosage: 400 MG
     Dates: start: 20220807
  4. NAPROXEN [Concomitant]
     Active Substance: NAPROXEN
     Dosage: 500 MILLIGRAM, 7 DAYS PER WEEK
     Dates: start: 20210608
  5. NAPROXEN [Concomitant]
     Active Substance: NAPROXEN
     Dosage: 500 MILLIGRAM
     Dates: start: 20210608, end: 20220510
  6. NAPROXEN [Concomitant]
     Active Substance: NAPROXEN
     Dosage: 500 MILLIGRAM
     Dates: start: 20210608, end: 20220715
  7. NAPROXEN [Concomitant]
     Active Substance: NAPROXEN
     Dosage: 500 MILLIGRAM
     Dates: start: 20210608, end: 20221128
  8. SIMPONI [Concomitant]
     Active Substance: GOLIMUMAB
     Dosage: 50MG EVERY 4 WEEKS
     Dates: start: 20200502, end: 20210515
  9. SIMPONI [Concomitant]
     Active Substance: GOLIMUMAB
     Dosage: 100MG EVERY 4 WEEKS
     Dates: start: 20210615, end: 20210815

REACTIONS (6)
  - Osteochondrosis [Unknown]
  - Intervertebral disc degeneration [Unknown]
  - Spinal stenosis [Unknown]
  - Asthma [Unknown]
  - Spinal osteoarthritis [Unknown]
  - Depression [Unknown]

NARRATIVE: CASE EVENT DATE: 20211011
